FAERS Safety Report 4393949-X (Version None)
Quarter: 2004Q3

REPORT INFORMATION
  Report Type: 
  Country: None (occurrence: None)
  Receive Date: 20040702
  Receipt Date: 20040624
  Transmission Date: 20050211
  Serious: Yes (Hospitalization)
  Sender: FDA-Public Use
  Company Number: 2004220770JP

PATIENT
  Age: 73 Year
  Sex: Female
  Weight: 47 kg

DRUGS (6)
  1. CABERGOLINE [Suspect]
     Dosage: 0.25 MG, QD, ORAL
     Route: 048
     Dates: start: 20021108
  2. MENESIT [Concomitant]
  3. SYMMETREL [Concomitant]
  4. MARZULENE S (SODIUM GUALENATE) [Concomitant]
  5. DORAL [Concomitant]
  6. MAGNESIUM OXIDE [Concomitant]

REACTIONS (4)
  - DECREASED APPETITE [None]
  - DIARRHOEA [None]
  - DIFFICULTY IN WALKING [None]
  - DYSPHAGIA [None]
